FAERS Safety Report 5875794-9 (Version None)
Quarter: 2008Q3

REPORT INFORMATION
  Report Type: 
  Country: None (occurrence: None)
  Receive Date: 20080909
  Receipt Date: 20080828
  Transmission Date: 20090109
  Serious: Yes (Other)
  Sender: FDA-Public Use
  Company Number: US-PFIZER INC-2008039276

PATIENT
  Sex: Female
  Weight: 81.6 kg

DRUGS (8)
  1. LYRICA [Suspect]
     Indication: FIBROMYALGIA
  2. LYRICA [Suspect]
  3. MORPHINE SULFATE [Concomitant]
     Indication: PAIN
  4. CELEXA [Concomitant]
  5. AMBIEN [Concomitant]
  6. SOMA [Concomitant]
  7. XANAX [Concomitant]
  8. ZANAFLEX [Concomitant]

REACTIONS (18)
  - AMNESIA [None]
  - DRUG INEFFECTIVE [None]
  - DRY MOUTH [None]
  - DYSPNOEA [None]
  - EYE DISORDER [None]
  - FEELING ABNORMAL [None]
  - FOOD CRAVING [None]
  - HEADACHE [None]
  - HYPERACUSIS [None]
  - INCREASED APPETITE [None]
  - INSOMNIA [None]
  - LOCAL SWELLING [None]
  - MIGRAINE WITH AURA [None]
  - OEDEMA PERIPHERAL [None]
  - PAIN [None]
  - PHARYNGEAL OEDEMA [None]
  - PSYCHOTIC DISORDER [None]
  - SEDATION [None]
